FAERS Safety Report 19410561 (Version 1)
Quarter: 2021Q2

REPORT INFORMATION
  Report Type: Spontaneous
  Country: PL (occurrence: PL)
  Receive Date: 20210614
  Receipt Date: 20210614
  Transmission Date: 20210717
  Serious: Yes (Other)
  Sender: FDA-Public Use
  Company Number: PL-LUPIN PHARMACEUTICALS INC.-2021-09185

PATIENT
  Age: 27 Year
  Sex: Female

DRUGS (4)
  1. LEVETIRACETAM. [Suspect]
     Active Substance: LEVETIRACETAM
     Indication: JUVENILE ABSENCE EPILEPSY
     Dosage: UNK
     Route: 065
  2. LACOSAMIDE. [Suspect]
     Active Substance: LACOSAMIDE
     Indication: JUVENILE ABSENCE EPILEPSY
     Dosage: 50 MILLIGRAM, QD
     Route: 065
  3. LAMOTRIGINE. [Suspect]
     Active Substance: LAMOTRIGINE
     Indication: JUVENILE ABSENCE EPILEPSY
     Dosage: UNK
     Route: 065
  4. LACOSAMIDE. [Suspect]
     Active Substance: LACOSAMIDE
     Dosage: 100 MILLIGRAM, BID (INCREASED BY 50 MG EACH WEEK TO 100 MG)
     Route: 065

REACTIONS (6)
  - Juvenile absence epilepsy [Recovering/Resolving]
  - Adverse event [Unknown]
  - Generalised tonic-clonic seizure [Recovering/Resolving]
  - Condition aggravated [Recovering/Resolving]
  - Myoclonic epilepsy [Recovering/Resolving]
  - Off label use [Unknown]
